FAERS Safety Report 21383281 (Version 1)
Quarter: 2022Q3

REPORT INFORMATION
  Report Type: Spontaneous
  Country: US (occurrence: US)
  Receive Date: 20220927
  Receipt Date: 20220927
  Transmission Date: 20221026
  Serious: No
  Sender: FDA-Public Use
  Company Number: US-TAKEDA-2022TUS066313

PATIENT
  Sex: Male

DRUGS (1)
  1. ENTYVIO [Suspect]
     Active Substance: VEDOLIZUMAB
     Indication: Product used for unknown indication
     Dosage: 300 MILLIGRAM, Q4WEEKS
     Route: 042

REACTIONS (2)
  - No adverse event [Unknown]
  - Off label use [Unknown]
